FAERS Safety Report 23182717 (Version 1)
Quarter: 2023Q4

REPORT INFORMATION
  Report Type: Spontaneous
  Country: US (occurrence: None)
  Receive Date: 20231114
  Receipt Date: 20231114
  Transmission Date: 20240110
  Serious: Yes (Disabling)
  Sender: FDA-Public Use
  Company Number: None

PATIENT
  Age: 38 Year
  Sex: Female
  Weight: 84.15 kg

DRUGS (7)
  1. SINGULAIR [Suspect]
     Active Substance: MONTELUKAST SODIUM
     Indication: Hypersensitivity
     Dates: start: 20211108, end: 20231001
  2. LEVOTHYROXINE [Concomitant]
     Active Substance: LEVOTHYROXINE
  3. CALCITRIOL [Concomitant]
     Active Substance: CALCITRIOL
  4. MONTELUKAST [Concomitant]
     Active Substance: MONTELUKAST SODIUM
  5. VITAMIN C [Concomitant]
     Active Substance: ASCORBIC ACID
  6. ZINC [Concomitant]
     Active Substance: PYRITHIONE ZINC\ZINC\ZINC CHLORIDE
  7. NEXIUM [Concomitant]
     Active Substance: ESOMEPRAZOLE MAGNESIUM

REACTIONS (26)
  - Brain fog [None]
  - Autoscopy [None]
  - Palpitations [None]
  - Malaise [None]
  - Headache [None]
  - Coordination abnormal [None]
  - Occipital neuralgia [None]
  - Paranoia [None]
  - Fatigue [None]
  - Hallucination, visual [None]
  - Dizziness [None]
  - Insomnia [None]
  - Anxiety [None]
  - Gait disturbance [None]
  - Abdominal discomfort [None]
  - Hypoaesthesia oral [None]
  - Paraesthesia oral [None]
  - Hypoaesthesia [None]
  - Paraesthesia [None]
  - Nausea [None]
  - Amnesia [None]
  - Arthralgia [None]
  - Vision blurred [None]
  - Loss of personal independence in daily activities [None]
  - Malaise [None]
  - Drug withdrawal syndrome [None]

NARRATIVE: CASE EVENT DATE: 20231001
